FAERS Safety Report 17176607 (Version 2)
Quarter: 2020Q1

REPORT INFORMATION
  Report Type: Spontaneous
  Country: FR (occurrence: FR)
  Receive Date: 20191219
  Receipt Date: 20200221
  Transmission Date: 20200409
  Serious: Yes (Other)
  Sender: FDA-Public Use
  Company Number: FR-MYLANLABS-2019M1124940

PATIENT
  Sex: Male

DRUGS (6)
  1. IXIARO [Suspect]
     Active Substance: JAPANESE ENCEPHALITIS VIRUS STRAIN NAKAYAMA-NIH ANTIGEN (FORMALDEHYDE INACTIVATED)
     Indication: JAPANESE ENCEPHALITIS IMMUNISATION
     Dosage: 1 DOSAGE FORM, TOTAL
     Route: 030
     Dates: start: 20171025, end: 20171025
  2. ACETYLSALICYLIC ACID [Suspect]
     Active Substance: ASPIRIN
     Indication: PRODUCT USED FOR UNKNOWN INDICATION
     Dosage: 1 DOSAGE FORM, TOTAL
     Route: 048
     Dates: start: 2018, end: 2018
  3. HEPATITIS A VACCINE NOS [Suspect]
     Active Substance: HEPATITIS A VACCINE, INACTIVATED
     Indication: HEPATITIS A IMMUNISATION
     Dosage: 1 DOSAGE FORM
     Route: 030
     Dates: start: 20171025, end: 20171025
  4. TYPHERIX [Suspect]
     Active Substance: TYPHOID VACCINE
     Indication: IMMUNISATION
     Dosage: 1 DOSAGE FORM, TOTAL
     Route: 030
     Dates: start: 20171025, end: 20171025
  5. IBUPROFEN. [Suspect]
     Active Substance: IBUPROFEN
     Indication: PRODUCT USED FOR UNKNOWN INDICATION
     Dosage: 1 DOSAGE FORM, TOTAL
     Route: 048
     Dates: start: 201903, end: 201903
  6. HEPATITIS A VACCINE NOS [Suspect]
     Active Substance: HEPATITIS A VACCINE, INACTIVATED
     Dosage: 1 DOSAGE FORM
     Route: 030
     Dates: start: 2018

REACTIONS (2)
  - Urticaria [Recovered/Resolved]
  - Urticaria chronic [Not Recovered/Not Resolved]

NARRATIVE: CASE EVENT DATE: 2017
